FAERS Safety Report 10140121 (Version 2)
Quarter: 2014Q2

REPORT INFORMATION
  Report Type: Spontaneous
  Country: IT (occurrence: IT)
  Receive Date: 20140429
  Receipt Date: 20140618
  Transmission Date: 20141212
  Serious: Yes (Life-Threatening, Hospitalization)
  Sender: FDA-Public Use
  Company Number: IT-PFIZER INC-2014114493

PATIENT
  Age: 58 Year
  Sex: Male
  Weight: 64 kg

DRUGS (13)
  1. ADRIBLASTINA [Suspect]
     Indication: NON-HODGKIN^S LYMPHOMA
     Dosage: 50 MG/M2, CYCLIC
     Route: 042
     Dates: start: 20121125, end: 20121221
  2. CALCITRIOL [Concomitant]
     Dosage: UNK
     Route: 048
  3. ENDOXAN-BAXTER [Concomitant]
     Indication: NON-HODGKIN^S LYMPHOMA
     Dosage: 750 MG/M2, CYCLIC
     Route: 042
     Dates: start: 20121125, end: 20121221
  4. VINCRISTINE TEVA ITALIA [Concomitant]
     Indication: NON-HODGKIN^S LYMPHOMA
     Dosage: 1.4 MG, CYCLIC
     Route: 042
     Dates: start: 20121125, end: 20121221
  5. URBASON SOLUBILE [Concomitant]
     Dosage: 40 MG/M2, CYCLIC
     Route: 042
     Dates: start: 20121125, end: 20121221
  6. MABTHERA [Concomitant]
     Indication: NON-HODGKIN^S LYMPHOMA
     Dosage: 375 MG/M2, CYCLIC
     Route: 042
     Dates: start: 20121129, end: 20121220
  7. SANDIMMUN [Concomitant]
     Dosage: UNK
     Route: 048
  8. DELTACORTENE [Concomitant]
     Dosage: UNK
     Route: 048
  9. DEURSIL [Concomitant]
     Dosage: 450 MG, UNK
     Route: 048
  10. TENORMIN [Concomitant]
     Dosage: 100 MG, UNK
     Route: 048
  11. GRANULOKINE [Concomitant]
     Dosage: UNK
     Route: 058
  12. CERTICAN [Concomitant]
     Dosage: UNK
     Route: 048
  13. PARIET [Concomitant]
     Dosage: UNK
     Route: 048

REACTIONS (1)
  - Acute myocardial infarction [Recovered/Resolved]
